FAERS Safety Report 9270035 (Version 2)
Quarter: 2013Q2

REPORT INFORMATION
  Report Type: Report from Study
  Country: DE (occurrence: DE)
  Receive Date: 20130503
  Receipt Date: 20130521
  Transmission Date: 20140414
  Serious: Yes (Hospitalization)
  Sender: FDA-Public Use
  Company Number: DE-ASTELLAS-2013EU003690

PATIENT
  Sex: Male

DRUGS (4)
  1. ENZALUTAMIDE [Suspect]
     Indication: PROSTATE CANCER
     Dosage: 160 MG, UID/QD
     Route: 048
     Dates: start: 20121220
  2. BISOPROLOL [Concomitant]
     Indication: ARRHYTHMIA
     Dosage: 5 MG, BID
     Route: 048
  3. AMIODARON                          /00133101/ [Concomitant]
     Indication: ARRHYTHMIA
     Dosage: 200 MG, TID
     Route: 048
     Dates: end: 20130411
  4. AMIODARON                          /00133101/ [Concomitant]
     Dosage: 200 MG, UID/QD
     Route: 048
     Dates: start: 20130412

REACTIONS (3)
  - Sick sinus syndrome [Recovered/Resolved]
  - Atrial fibrillation [Recovered/Resolved]
  - Atrial flutter [Recovered/Resolved]
